FAERS Safety Report 5342213-0 (Version None)
Quarter: 2007Q2

REPORT INFORMATION
  Report Type: 
  Country: None (occurrence: None)
  Receive Date: 20070601
  Receipt Date: 20070525
  Transmission Date: 20071010
  Serious: Yes (Hospitalization)
  Sender: FDA-Public Use
  Company Number: DE-ROCHE-499308

PATIENT
  Age: 52 Year
  Sex: Male
  Weight: 104 kg

DRUGS (4)
  1. PEG-INTERFERON ALFA 2A (RO 25-8310) [Suspect]
     Route: 058
     Dates: start: 20060526
  2. RIBAVIRIN [Suspect]
     Route: 048
     Dates: start: 20060526
  3. PK-MERZ [Suspect]
     Indication: DRUG USE FOR UNKNOWN INDICATION
     Route: 048
     Dates: start: 20060526
  4. GLIMEPIRIDE [Concomitant]
     Dates: start: 20000101

REACTIONS (1)
  - PROSTATITIS [None]
